FAERS Safety Report 10155128 (Version 2)
Quarter: 2014Q2

REPORT INFORMATION
  Report Type: Spontaneous
  Country: IN (occurrence: IN)
  Receive Date: 20140506
  Receipt Date: 20140515
  Transmission Date: 20141212
  Serious: Yes (Hospitalization, Other)
  Sender: FDA-Public Use
  Company Number: IN-BAXTER-2014BAX021594

PATIENT
  Age: 72 Year
  Sex: Male

DRUGS (1)
  1. EXTRANEAL PERITONEAL DALYSIS SOLUTION WITH ICODEXTRIN 7.5% [Suspect]
     Indication: PERITONEAL DIALYSIS
     Route: 033

REACTIONS (2)
  - Urinary tract infection [Unknown]
  - Peritonitis [Recovered/Resolved]
